FAERS Safety Report 21631878 (Version 2)
Quarter: 2023Q1

REPORT INFORMATION
  Report Type: Spontaneous
  Country: NL (occurrence: NL)
  Receive Date: 20221123
  Receipt Date: 20230113
  Transmission Date: 20230418
  Serious: Yes (Other)
  Sender: FDA-Public Use
  Company Number: NL-MYLANLABS-2022M1124179

PATIENT
  Sex: Male

DRUGS (1)
  1. ATORVASTATIN [Suspect]
     Active Substance: ATORVASTATIN
     Indication: Blood cholesterol increased
     Dosage: UNK
     Route: 048

REACTIONS (4)
  - Muscle injury [Recovered/Resolved]
  - Rhabdomyolysis [Recovered/Resolved]
  - Muscle atrophy [Recovered/Resolved]
  - Product substitution issue [Unknown]
